FAERS Safety Report 19495126 (Version 2)
Quarter: 2021Q3

REPORT INFORMATION
  Report Type: Spontaneous
  Country: US (occurrence: US)
  Receive Date: 20210705
  Receipt Date: 20210722
  Transmission Date: 20211014
  Serious: Yes (Other)
  Sender: FDA-Public Use
  Company Number: US-AUROBINDO-AUR-APL-2021-027992

PATIENT
  Age: 35 Year
  Sex: Female

DRUGS (25)
  1. ALPRAZOLAM. [Suspect]
     Active Substance: ALPRAZOLAM
     Indication: ANXIETY
     Dosage: UNK
     Route: 065
  2. LURASIDONE [Suspect]
     Active Substance: LURASIDONE
     Indication: ANXIETY
     Dosage: 40 MILLIGRAM
     Route: 065
  3. LURASIDONE [Suspect]
     Active Substance: LURASIDONE
     Indication: DEPRESSION
     Dosage: 20 MILLIGRAM
     Route: 065
  4. TRAZODONE [Suspect]
     Active Substance: TRAZODONE HYDROCHLORIDE
     Indication: ANXIETY
     Dosage: UNK
     Route: 065
  5. BUPROPION. [Suspect]
     Active Substance: BUPROPION
     Indication: ANXIETY
     Dosage: UNK
     Route: 065
  6. ETHINYLESTRADIOL;ETONOGESTREL [Suspect]
     Active Substance: ETHINYL ESTRADIOL\ETONOGESTREL
     Indication: PERSISTENT GENITAL AROUSAL DISORDER
     Dosage: UNK
     Route: 065
  7. DESVENLAFAXINE. [Suspect]
     Active Substance: DESVENLAFAXINE
     Indication: DEPRESSION
     Dosage: UNK
     Route: 065
  8. DESVENLAFAXINE. [Suspect]
     Active Substance: DESVENLAFAXINE
     Indication: ANXIETY
  9. AMITRIPTYLINE [Suspect]
     Active Substance: AMITRIPTYLINE
     Indication: DEPRESSION
  10. FLUOXETINE [Suspect]
     Active Substance: FLUOXETINE HYDROCHLORIDE
     Indication: DEPRESSION
     Dosage: UNK
     Route: 065
  11. QUETIAPINE. [Suspect]
     Active Substance: QUETIAPINE
     Indication: DEPRESSION
     Dosage: UNK
     Route: 065
  12. VILAZODONE [Suspect]
     Active Substance: VILAZODONE
     Indication: ANXIETY
     Dosage: UNK
     Route: 065
  13. TRAMADOL. [Concomitant]
     Active Substance: TRAMADOL
     Indication: PRODUCT USED FOR UNKNOWN INDICATION
     Dosage: UNK
     Route: 065
  14. VENLAFAXINE [Suspect]
     Active Substance: VENLAFAXINE HYDROCHLORIDE
     Indication: DEPRESSION
  15. ALPRAZOLAM. [Suspect]
     Active Substance: ALPRAZOLAM
     Indication: DEPRESSION
  16. TRAZODONE [Suspect]
     Active Substance: TRAZODONE HYDROCHLORIDE
     Indication: DEPRESSION
  17. VENLAFAXINE [Suspect]
     Active Substance: VENLAFAXINE HYDROCHLORIDE
     Indication: ANXIETY
     Dosage: UNK
     Route: 065
  18. SERTRALINE [Suspect]
     Active Substance: SERTRALINE HYDROCHLORIDE
     Indication: ANXIETY
     Dosage: UNK
     Route: 065
     Dates: start: 201806
  19. QUETIAPINE. [Suspect]
     Active Substance: QUETIAPINE
     Indication: ANXIETY
  20. ZOLPIDEM [Suspect]
     Active Substance: ZOLPIDEM TARTRATE
     Indication: ANXIETY
     Dosage: UNK
     Route: 065
     Dates: start: 201806
  21. BUPROPION. [Suspect]
     Active Substance: BUPROPION
     Indication: DEPRESSION
  22. AMITRIPTYLINE [Suspect]
     Active Substance: AMITRIPTYLINE
     Indication: ANXIETY
     Dosage: UNK
     Route: 065
  23. ZOLPIDEM [Suspect]
     Active Substance: ZOLPIDEM TARTRATE
     Indication: PERSISTENT GENITAL AROUSAL DISORDER
  24. LEVOMILNACIPRAN [Suspect]
     Active Substance: LEVOMILNACIPRAN
     Indication: ANXIETY
     Dosage: UNK
     Route: 065
  25. VILAZODONE [Suspect]
     Active Substance: VILAZODONE
     Indication: DEPRESSION

REACTIONS (3)
  - Condition aggravated [Recovering/Resolving]
  - Persistent genital arousal disorder [Recovering/Resolving]
  - Drug ineffective [Unknown]

NARRATIVE: CASE EVENT DATE: 201703
